FAERS Safety Report 21841988 (Version 1)
Quarter: 2023Q1

REPORT INFORMATION
  Report Type: Spontaneous
  Country: US (occurrence: None)
  Receive Date: 20230109
  Receipt Date: 20230109
  Transmission Date: 20230417
  Serious: Yes (Hospitalization)
  Sender: FDA-Public Use
  Company Number: None

PATIENT
  Sex: Male

DRUGS (2)
  1. VIGABATRIN [Suspect]
     Active Substance: VIGABATRIN
     Indication: Seizure
     Dates: start: 202210
  2. VIGABATRIN [Suspect]
     Active Substance: VIGABATRIN
     Indication: Dyskinesia

REACTIONS (1)
  - Fatigue [None]
